FAERS Safety Report 23209029 (Version 2)
Quarter: 2023Q4

REPORT INFORMATION
  Report Type: Report from Study
  Country: US (occurrence: US)
  Receive Date: 20231121
  Receipt Date: 20231224
  Transmission Date: 20240110
  Serious: Yes (Other)
  Sender: FDA-Public Use
  Company Number: US-Merck Healthcare KGaA-2023488991

PATIENT
  Age: 33 Year
  Sex: Male

DRUGS (2)
  1. REBIF [Suspect]
     Active Substance: INTERFERON BETA-1A
     Indication: Multiple sclerosis
     Dosage: REBIF: REBIDOSE
     Route: 058
     Dates: start: 20230714
  2. CHANTIX [Concomitant]
     Active Substance: VARENICLINE TARTRATE
     Indication: Tobacco user

REACTIONS (2)
  - Deep vein thrombosis [Recovering/Resolving]
  - Limb injury [Unknown]

NARRATIVE: CASE EVENT DATE: 20231001
